FAERS Safety Report 6425975-0 (Version None)
Quarter: 2009Q4

REPORT INFORMATION
  Report Type: 
  Country: None (occurrence: None)
  Receive Date: 20091103
  Receipt Date: 20091103
  Transmission Date: 20100525
  Serious: No
  Sender: FDA-Public Use
  Company Number: None

PATIENT
  Age: 65 Year
  Sex: Male

DRUGS (1)
  1. INSULIN [Suspect]
     Dosage: SQ
     Route: 058
     Dates: start: 20080520, end: 20080607

REACTIONS (3)
  - DYSKINESIA [None]
  - HYPOGLYCAEMIA [None]
  - THERAPEUTIC RESPONSE DELAYED [None]
